FAERS Safety Report 8959619 (Version 2)
Quarter: 2013Q1

REPORT INFORMATION
  Report Type: Spontaneous
  Country: BR (occurrence: BR)
  Receive Date: 20121212
  Receipt Date: 20130325
  Transmission Date: 20140127
  Serious: Yes (Other)
  Sender: FDA-Public Use
  Company Number: BR-AMGEN-BRASP2012079676

PATIENT
  Age: 51 Year
  Sex: Female
  Weight: 78 kg

DRUGS (7)
  1. ENBREL [Suspect]
     Indication: ANKYLOSING SPONDYLITIS
     Dosage: 50 MG, ONCE WEEKLY
     Route: 058
     Dates: start: 201112, end: 201206
  2. ENBREL [Suspect]
     Dosage: UNK
     Dates: start: 201207, end: 201210
  3. ATACAND [Concomitant]
     Indication: HYPERTENSION
     Dosage: UNK
  4. LEVOTHYROXINE SODIUM [Concomitant]
     Indication: HYPOTHYROIDISM
     Dosage: UNK
     Dates: start: 2004
  5. VENLAFAXINE [Concomitant]
     Dosage: UNK
  6. CYMBALTA [Concomitant]
     Dosage: UNK
  7. LYRICA [Concomitant]
     Dosage: UNK

REACTIONS (3)
  - Pyelonephritis [Not Recovered/Not Resolved]
  - Kidney infection [Unknown]
  - Urinary tract infection [Not Recovered/Not Resolved]
